FAERS Safety Report 8620767-6 (Version None)
Quarter: 2012Q3

REPORT INFORMATION
  Report Type: 
  Country: None (occurrence: None)
  Receive Date: 20120824
  Receipt Date: 20120820
  Transmission Date: 20120928
  Serious: Yes (Death, Life-Threatening)
  Sender: FDA-Public Use
  Company Number: JP-AMGEN-JPNCT2012028345

PATIENT
  Age: 57 Year
  Sex: Female
  Weight: 51 kg

DRUGS (9)
  1. KOLANTYL [Concomitant]
     Indication: PROPHYLAXIS
     Dosage: UNK
     Route: 048
  2. LANSOPRAZOLE [Concomitant]
     Indication: PROPHYLAXIS
     Dosage: UNK
     Route: 048
  3. URSO 250 [Concomitant]
     Indication: LIVER DISORDER
     Dosage: UNK
     Route: 048
  4. PREDNISOLONE [Concomitant]
     Indication: IDIOPATHIC THROMBOCYTOPENIC PURPURA
     Dosage: 10 MG, UNK
     Route: 048
     Dates: start: 20080623, end: 20120103
  5. DIOVAN [Concomitant]
     Indication: HYPERTENSION
     Dosage: UNK
     Route: 048
  6. PLETAL [Concomitant]
     Indication: PROPHYLAXIS
     Dosage: UNK
     Route: 048
  7. LASIX [Concomitant]
     Indication: OEDEMA
     Dosage: UNK
     Route: 048
  8. MIGLITOL [Concomitant]
     Indication: DIABETES MELLITUS
     Dosage: UNK
     Route: 048
  9. ROMIPLOSTIM - KHK [Suspect]
     Indication: IDIOPATHIC THROMBOCYTOPENIC PURPURA
     Dosage: 200 MUG/KG, QWK
     Route: 058
     Dates: start: 20110720, end: 20111228

REACTIONS (4)
  - ANAEMIA [None]
  - CEREBRAL INFARCTION [None]
  - SEPSIS [None]
  - WHITE BLOOD CELL COUNT INCREASED [None]
